FAERS Safety Report 14433856 (Version 1)
Quarter: 2018Q1

REPORT INFORMATION
  Report Type: Other
  Country: HK (occurrence: HK)
  Receive Date: 20180124
  Receipt Date: 20180124
  Transmission Date: 20180509
  Serious: Yes (Other)
  Sender: FDA-Public Use
  Company Number: HK-ACIC FINE CHEMICALS INC-2040736

PATIENT
  Age: 57 Year

DRUGS (1)
  1. TRANEXAMIC ACID. [Suspect]
     Active Substance: TRANEXAMIC ACID
     Indication: HAEMORRHAGE
     Route: 041

REACTIONS (4)
  - Disorientation [Recovered/Resolved]
  - Vision blurred [Recovered/Resolved]
  - Myoclonus [Recovered/Resolved]
  - Disorganised speech [Recovered/Resolved]
